FAERS Safety Report 12109721 (Version 1)
Quarter: 2016Q1

REPORT INFORMATION
  Report Type: Spontaneous
  Country: US (occurrence: None)
  Receive Date: 20160222
  Receipt Date: 20160222
  Transmission Date: 20160526
  Serious: Yes (Hospitalization)
  Sender: FDA-Public Use
  Company Number: None

PATIENT
  Age: 86 Year
  Sex: Male
  Weight: 79.2 kg

DRUGS (1)
  1. WARFARIN [Suspect]
     Active Substance: WARFARIN
     Indication: ATRIAL FIBRILLATION
     Dates: start: 20100401, end: 20151214

REACTIONS (5)
  - Cholelithiasis [None]
  - International normalised ratio increased [None]
  - Cholecystitis acute [None]
  - Renal cell carcinoma [None]
  - Haemorrhage [None]

NARRATIVE: CASE EVENT DATE: 20151214
